FAERS Safety Report 20758810 (Version 1)
Quarter: 2022Q2

REPORT INFORMATION
  Report Type: Spontaneous
  Country: US (occurrence: US)
  Receive Date: 20220427
  Receipt Date: 20220427
  Transmission Date: 20220721
  Serious: No
  Sender: FDA-Public Use
  Company Number: US-BoehringerIngelheim-2022-BI-167691

PATIENT
  Age: 72 Year
  Sex: Female

DRUGS (7)
  1. STIOLTO RESPIMAT [Suspect]
     Active Substance: OLODATEROL HYDROCHLORIDE\TIOTROPIUM BROMIDE MONOHYDRATE
     Indication: Chronic obstructive pulmonary disease
     Dosage: 2 INHALATIONS ONCE DAILY
  2. BEVESPI AEROSPHERE [Suspect]
     Active Substance: FORMOTEROL FUMARATE\GLYCOPYRROLATE
     Indication: Product used for unknown indication
  3. METOPROLOL [Concomitant]
     Active Substance: METOPROLOL
     Indication: Hypertension
  4. LOSARTAN [Concomitant]
     Active Substance: LOSARTAN
     Indication: Hypertension
  5. MAGNESIUM [Concomitant]
     Active Substance: MAGNESIUM
     Indication: Product used for unknown indication
  6. POTASSIUM [Concomitant]
     Active Substance: POTASSIUM
     Indication: Product used for unknown indication
  7. Ponaris [Concomitant]
     Indication: Epistaxis

REACTIONS (3)
  - Muscle spasms [Recovered/Resolved]
  - Incontinence [Recovering/Resolving]
  - Urinary retention [Recovering/Resolving]
